APPROVED DRUG PRODUCT: LABID
Active Ingredient: THEOPHYLLINE
Strength: 250MG
Dosage Form/Route: TABLET, EXTENDED RELEASE;ORAL
Application: A087225 | Product #001
Applicant: WARNER CHILCOTT CO LLC
Approved: Approved Prior to Jan 1, 1982 | RLD: No | RS: No | Type: DISCN